FAERS Safety Report 19962784 (Version 2)
Quarter: 2021Q4

REPORT INFORMATION
  Report Type: Spontaneous
  Country: US (occurrence: US)
  Receive Date: 20211018
  Receipt Date: 20211123
  Transmission Date: 20220303
  Serious: Yes (Other)
  Sender: FDA-Public Use
  Company Number: US-BAYER-2021A226895

PATIENT
  Age: 31 Year
  Sex: Female
  Weight: 258 kg

DRUGS (7)
  1. KYLEENA [Suspect]
     Active Substance: LEVONORGESTREL
     Indication: Contraception
     Dosage: 17.5?G/DAY
     Route: 015
     Dates: start: 20210923, end: 20211007
  2. B COMPLEX WITH FOLIC ACID [Concomitant]
  3. COLESTIPOL HYDROCHLORIDE [Concomitant]
     Active Substance: COLESTIPOL HYDROCHLORIDE
  4. FLUTICASONE FUROATE [Concomitant]
     Active Substance: FLUTICASONE FUROATE
  5. MONTELUKAST SODIUM [Concomitant]
     Active Substance: MONTELUKAST SODIUM
     Dosage: 10 MG
     Route: 048
  6. SERTRALINE HYDROCHLORIDE [Concomitant]
     Active Substance: SERTRALINE HYDROCHLORIDE
     Dosage: 30 MG, ONCE
     Route: 048
  7. ZYRTEC [Concomitant]
     Active Substance: CETIRIZINE HYDROCHLORIDE
     Route: 048

REACTIONS (8)
  - Device dislocation [Recovered/Resolved]
  - Post procedural haemorrhage [None]
  - Procedural pain [None]
  - Ovarian cyst [None]
  - Smear cervix abnormal [None]
  - Papilloma viral infection [None]
  - Procedural haemorrhage [None]
  - Vaginal haemorrhage [None]

NARRATIVE: CASE EVENT DATE: 20211007
